FAERS Safety Report 6543547-4 (Version None)
Quarter: 2010Q1

REPORT INFORMATION
  Report Type: 
  Country: None (occurrence: None)
  Receive Date: 20100115
  Receipt Date: 20100106
  Transmission Date: 20100710
  Serious: Yes (Hospitalization, Disabling, Other)
  Sender: FDA-Public Use
  Company Number: 2010SP001548

PATIENT
  Age: 83 Year
  Sex: Female

DRUGS (6)
  1. CELESTONE SOLUSPAN [Suspect]
     Indication: OFF LABEL USE
     Dosage: 6
  2. CELESTONE SOLUSPAN [Suspect]
     Indication: RADICULAR PAIN
     Dosage: 6
  3. BUPIVACAINE HCL [Suspect]
     Indication: RADICULAR PAIN
     Dosage: 1 DF;
  4. GABAPENTIN [Concomitant]
  5. NSAID [Concomitant]
  6. HYDROCODONE [Concomitant]

REACTIONS (8)
  - ARTHRALGIA [None]
  - EMBOLISM [None]
  - HYPOAESTHESIA [None]
  - IMMEDIATE POST-INJECTION REACTION [None]
  - MUSCULAR WEAKNESS [None]
  - NEUROGENIC BLADDER [None]
  - NEUROGENIC BOWEL [None]
  - SPINAL CORD INFARCTION [None]
